FAERS Safety Report 4960378-7 (Version None)
Quarter: 2006Q1

REPORT INFORMATION
  Report Type: 
  Country: None (occurrence: None)
  Receive Date: 20060328
  Receipt Date: 20060313
  Transmission Date: 20060701
  Serious: Yes (Hospitalization)
  Sender: FDA-Public Use
  Company Number: 2006036167

PATIENT
  Age: 44 Year
  Sex: Female

DRUGS (4)
  1. PREGBALIN               (PREGABALIN) [Suspect]
     Indication: NEURALGIA
     Dosage: 600 MG (1 D)
  2. AMITRIPTYLINE (AMITRIPTYLINE) [Concomitant]
  3. BACLOFEN [Concomitant]
  4. FLUNITRAZEPAM (FLUNITRAZEPAM) [Concomitant]

REACTIONS (11)
  - AFFECTIVE DISORDER [None]
  - AGITATION [None]
  - CSF PROTEIN INCREASED [None]
  - DISORIENTATION [None]
  - ELECTROENCEPHALOGRAM ABNORMAL [None]
  - EPILEPSY [None]
  - HALLUCINATION, VISUAL [None]
  - PARANOIA [None]
  - POSTICTAL STATE [None]
  - PSYCHOTIC DISORDER [None]
  - SOMNOLENCE [None]
